FAERS Safety Report 9239212 (Version 6)
Quarter: 2013Q3

REPORT INFORMATION
  Report Type: Report from Study
  Country: DE (occurrence: DE)
  Receive Date: 20130418
  Receipt Date: 20130909
  Transmission Date: 20140515
  Serious: Yes (Hospitalization)
  Sender: FDA-Public Use
  Company Number: DE-ROCHE-1213846

PATIENT
  Age: 53 Year
  Sex: Female
  Weight: 51 kg

DRUGS (10)
  1. BEVACIZUMAB [Suspect]
     Indication: COLORECTAL CANCER METASTATIC
     Dosage: LAST DOSE PRIOR TO SAE: 19/MAR/2013
     Route: 042
     Dates: start: 20121113, end: 20130313
  2. IRINOTECAN HYDROCHLORIDE [Suspect]
     Indication: COLORECTAL CANCER METASTATIC
     Dosage: LAST DOSE PRIOR TO SAE: 19/MAR/2013
     Route: 042
     Dates: start: 20121113
  3. IRINOTECAN HYDROCHLORIDE [Suspect]
     Route: 042
     Dates: start: 20130423, end: 20130506
  4. LEUCOVORIN [Suspect]
     Indication: COLORECTAL CANCER METASTATIC
     Dosage: LAST DOSE PRIOR TO SAE: 19/MAR/2013
     Route: 042
     Dates: start: 20121113
  5. LEUCOVORIN [Suspect]
     Route: 042
     Dates: start: 20130423, end: 20130506
  6. FLUOROURACIL [Suspect]
     Indication: COLORECTAL CANCER METASTATIC
     Dosage: LAST DOSE PRIOR TO SAE: 20/MAR/2013
     Route: 042
     Dates: start: 20121113
  7. FLUOROURACIL [Suspect]
     Route: 042
     Dates: start: 20130423, end: 20130506
  8. DEXAMETHASON [Concomitant]
     Indication: VOMITING
     Dosage: LAST DOSE PRIOR TO SAE: 19/MAR/2013
     Route: 042
     Dates: start: 20121113
  9. ALOXI [Concomitant]
     Indication: VOMITING
     Dosage: LAST DOSE PRIOR TO SAE: 19/MAR/2013
     Route: 042
     Dates: start: 20121113
  10. ATROPIN [Concomitant]
     Indication: VOMITING
     Dosage: LAST DOSE PRIOR TO SAE: 19/MAR/2013
     Route: 058
     Dates: start: 20121113

REACTIONS (5)
  - Gastrointestinal disorder [Recovered/Resolved]
  - Vomiting [Recovered/Resolved]
  - Colostomy [Recovering/Resolving]
  - Stoma site haemorrhage [Recovered/Resolved]
  - Abdominal pain upper [Recovered/Resolved]
